FAERS Safety Report 21677057 (Version 2)
Quarter: 2023Q2

REPORT INFORMATION
  Report Type: Spontaneous
  Country: US (occurrence: None)
  Receive Date: 20221203
  Receipt Date: 20230407
  Transmission Date: 20230721
  Serious: No
  Sender: FDA-Public Use
  Company Number: 2022A375074

PATIENT
  Age: 56 Year
  Sex: Female
  Weight: 50.8 kg

DRUGS (2)
  1. SYMLIN [Interacting]
     Active Substance: PRAMLINTIDE ACETATE
     Indication: Type 1 diabetes mellitus
     Route: 058
     Dates: start: 2011
  2. INSULIN NOS [Interacting]
     Active Substance: INSULIN NOS

REACTIONS (6)
  - Potentiating drug interaction [Not Recovered/Not Resolved]
  - Blood glucose increased [Unknown]
  - Wrong technique in device usage process [Recovered/Resolved]
  - Drug dose omission by device [Not Recovered/Not Resolved]
  - Incorrect dose administered by device [Not Recovered/Not Resolved]
  - Device delivery system issue [Unknown]

NARRATIVE: CASE EVENT DATE: 20110101
